FAERS Safety Report 21955436 (Version 3)
Quarter: 2023Q2

REPORT INFORMATION
  Report Type: Spontaneous
  Country: CN (occurrence: CN)
  Receive Date: 20230206
  Receipt Date: 20230418
  Transmission Date: 20230722
  Serious: Yes (Other)
  Sender: FDA-Public Use
  Company Number: CN-NOVOPROD-1017761

PATIENT
  Age: 60 Year
  Sex: Male
  Weight: 97 kg

DRUGS (1)
  1. RYZODEG 70/30 [Suspect]
     Active Substance: INSULIN ASPART\INSULIN DEGLUDEC
     Indication: Type 2 diabetes mellitus
     Dosage: 36 IU, QD (24 U IN THE MORNING AND 12 U IN THE EVENING)
     Route: 058

REACTIONS (4)
  - Blood glucose increased [Unknown]
  - Device delivery system issue [Unknown]
  - Device leakage [Unknown]
  - Device delivery system issue [Unknown]
